FAERS Safety Report 6769497-6 (Version None)
Quarter: 2010Q2

REPORT INFORMATION
  Report Type: 
  Country: None (occurrence: None)
  Receive Date: 20100604
  Receipt Date: 20100528
  Transmission Date: 20101027
  Serious: Yes (Hospitalization)
  Sender: FDA-Public Use
  Company Number: 2009SP014813

PATIENT
  Age: 27 Year
  Sex: Female

DRUGS (8)
  1. PEGINTERFERON ALFA-2B [Suspect]
     Indication: HEPATITIS C
     Dosage: 80 MCG;QW;SC
     Route: 058
     Dates: start: 20090219
  2. RIBAVIRIN [Suspect]
     Indication: HEPATITIS C
     Dosage: 800 MG;QD; 600 MG;QD;
     Dates: start: 20090219, end: 20090610
  3. RIBAVIRIN [Suspect]
     Indication: THROMBOCYTOPENIA
     Dosage: 800 MG;QD; 600 MG;QD;
     Dates: start: 20090219, end: 20090610
  4. RIBAVIRIN [Suspect]
     Indication: HEPATITIS C
     Dosage: 800 MG;QD; 600 MG;QD;
     Dates: start: 20090611
  5. RIBAVIRIN [Suspect]
     Indication: THROMBOCYTOPENIA
     Dosage: 800 MG;QD; 600 MG;QD;
     Dates: start: 20090611
  6. ELTROMBOPAG (ELTROMBOPAG) [Suspect]
     Indication: THROMBOCYTOPENIA
     Dosage: 25 MG;QD;PO
     Route: 048
     Dates: start: 20090205, end: 20090218
  7. ELTROMBOPAG (ELTROMBOPAG) [Suspect]
     Indication: THROMBOCYTOPENIA
     Dosage: 25 MG;QD;PO
     Route: 048
     Dates: start: 20090219
  8. EPOETIN ALFA [Concomitant]

REACTIONS (5)
  - ANAEMIA [None]
  - HEADACHE [None]
  - HEPATIC CIRRHOSIS [None]
  - LEUKOCYTOSIS [None]
  - THROMBOCYTOPENIA [None]
